FAERS Safety Report 7976161-4 (Version None)
Quarter: 2011Q4

REPORT INFORMATION
  Report Type: 
  Country: None (occurrence: None)
  Receive Date: 20111213
  Receipt Date: 20111013
  Transmission Date: 20120403
  Serious: No
  Sender: FDA-Public Use
  Company Number: US-AMGEN-USASP2011052962

PATIENT
  Age: 66 Year
  Sex: Female

DRUGS (1)
  1. ENBREL [Suspect]
     Indication: GRANULOMA ANNULARE
     Dosage: 50 MG, Q2WK
     Dates: start: 20040501

REACTIONS (1)
  - GRANULOMA ANNULARE [None]
